FAERS Safety Report 6833377-8 (Version None)
Quarter: 2010Q3

REPORT INFORMATION
  Report Type: 
  Country: None (occurrence: None)
  Receive Date: 20100712
  Receipt Date: 20070321
  Transmission Date: 20110219
  Serious: No
  Sender: FDA-Public Use
  Company Number: US-PFIZER INC-2007023001

PATIENT
  Sex: Female
  Weight: 132.45 kg

DRUGS (3)
  1. CHANTIX [Suspect]
     Indication: SMOKING CESSATION THERAPY
     Route: 048
     Dates: start: 20070317
  2. BACTRIM [Concomitant]
     Indication: SKIN INFECTION
     Dates: start: 20070316
  3. LEXAPRO [Concomitant]

REACTIONS (1)
  - NERVOUSNESS [None]
